FAERS Safety Report 8043390-3 (Version None)
Quarter: 2012Q1

REPORT INFORMATION
  Report Type: 
  Country: None (occurrence: None)
  Receive Date: 20120112
  Receipt Date: 20120109
  Transmission Date: 20120608
  Serious: Yes (Hospitalization)
  Sender: FDA-Public Use
  Company Number: GB-AMGEN-GBRCT2012001458

PATIENT
  Age: 83 Year
  Sex: Male

DRUGS (4)
  1. BLINDED DARBEPOETIN ALFA [Suspect]
     Indication: CARDIAC FAILURE
     Dosage: UNK UNK, QMO
     Route: 058
     Dates: start: 20110509, end: 20111220
  2. BLINDED PLACEBO [Suspect]
     Indication: CARDIAC FAILURE
     Dosage: UNK UNK, QMO
     Route: 058
     Dates: start: 20110509, end: 20111220
  3. WARFARIN SODIUM [Concomitant]
     Dosage: UNK
     Dates: start: 20020101
  4. BLINDED DARBEPOETIN ALFA [Suspect]
     Dosage: UNK UNK, QMO
     Route: 058
     Dates: start: 20110509, end: 20111220

REACTIONS (1)
  - GASTROINTESTINAL HAEMORRHAGE [None]
